FAERS Safety Report 5600704-9 (Version None)
Quarter: 2008Q1

REPORT INFORMATION
  Report Type: 
  Country: None (occurrence: None)
  Receive Date: 20080111
  Receipt Date: 20071102
  Transmission Date: 20080703
  Serious: Yes (Hospitalization, Other)
  Sender: FDA-Public Use
  Company Number: HQWYE282613JAN04

PATIENT
  Age: 70 Year
  Sex: Female
  Weight: 79.45 kg

DRUGS (1)
  1. PREMPRO [Suspect]
     Dosage: UNKNOWN DOSE, ORAL
     Route: 048
     Dates: start: 20000101, end: 20011215

REACTIONS (1)
  - CEREBROVASCULAR ACCIDENT [None]
